FAERS Safety Report 6877359-9 (Version None)
Quarter: 2010Q3

REPORT INFORMATION
  Report Type: 
  Country: None (occurrence: None)
  Receive Date: 20100727
  Receipt Date: 20090921
  Transmission Date: 20110219
  Serious: No
  Sender: FDA-Public Use
  Company Number: US-ABBOTT-09P-163-0598866-00

PATIENT
  Sex: Female
  Weight: 64.014 kg

DRUGS (1)
  1. SYNTHROID [Suspect]
     Indication: HYPOTHYROIDISM
     Dates: start: 20090701

REACTIONS (11)
  - CARPAL TUNNEL SYNDROME [None]
  - DIZZINESS [None]
  - EMOTIONAL DISTRESS [None]
  - FEELING ABNORMAL [None]
  - HYPOAESTHESIA [None]
  - ILL-DEFINED DISORDER [None]
  - INSOMNIA [None]
  - MYALGIA [None]
  - PERFORMANCE STATUS DECREASED [None]
  - SWELLING FACE [None]
  - TARSAL TUNNEL SYNDROME [None]
